FAERS Safety Report 24554445 (Version 2)
Quarter: 2024Q4

REPORT INFORMATION
  Report Type: Report from Study
  Country: CO (occurrence: CO)
  Receive Date: 20241028
  Receipt Date: 20241126
  Transmission Date: 20250114
  Serious: Yes (Other)
  Sender: RECORDATI
  Company Number: CO-ORPHANEU-2023004914

PATIENT

DRUGS (11)
  1. ISTURISA [Suspect]
     Active Substance: OSILODROSTAT PHOSPHATE
     Indication: Cushing^s syndrome
     Dosage: 2 MILLIGRAM, QD
     Route: 048
     Dates: start: 20230312, end: 2023
  2. ISTURISA [Suspect]
     Active Substance: OSILODROSTAT PHOSPHATE
     Dosage: 4 MILLIGRAM EVERY 24 HOURS, QD
     Route: 048
     Dates: start: 2023, end: 202304
  3. ISTURISA [Suspect]
     Active Substance: OSILODROSTAT PHOSPHATE
     Dosage: 5 MILLIGRAM, Q12H
     Route: 048
     Dates: start: 202304, end: 202308
  4. ISTURISA [Suspect]
     Active Substance: OSILODROSTAT PHOSPHATE
     Dosage: 1 TABLET OF 5 MG IN THE MORNING AND 2  TABLETS OF 5 MG IN THE AFTERNOON
     Route: 048
     Dates: start: 20230823, end: 202312
  5. ISTURISA [Suspect]
     Active Substance: OSILODROSTAT PHOSPHATE
     Dosage: 2 TABLETS OF 5 MG EVERY 12 HOURS
     Route: 048
     Dates: start: 20231230
  6. ISTURISA [Suspect]
     Active Substance: OSILODROSTAT PHOSPHATE
     Dosage: 2 TABLETS OF 5 MG EVERY 12 HOURS
     Route: 048
     Dates: start: 20231230
  7. KETOCONAZOLE [Concomitant]
     Active Substance: KETOCONAZOLE
     Indication: Cushing^s syndrome
     Dosage: 2 TABLETS DAY
  8. KETOCONAZOLE [Concomitant]
     Active Substance: KETOCONAZOLE
     Indication: Hyperadrenocorticism
     Dosage: 200 MILLIGRAM, QD (200 MG STRENGTH)
  9. METYRAPONE [Concomitant]
     Active Substance: METYRAPONE
     Indication: Cushing^s syndrome
     Dosage: 2 TABLETS DAY (250 MG)
  10. METYRAPONE [Concomitant]
     Active Substance: METYRAPONE
     Indication: Hyperadrenocorticism
     Dosage: 250 MILLIGRAM (1 TABLET) PER DAY
  11. VITAMIN D3 [Concomitant]
     Active Substance: CHOLECALCIFEROL
     Indication: Vitamin supplementation
     Dosage: 2000UI PER DAY

REACTIONS (8)
  - Glucocorticoid deficiency [Not Recovered/Not Resolved]
  - Paraesthesia [Recovered/Resolved]
  - Muscular weakness [Recovered/Resolved]
  - Oedema peripheral [Recovered/Resolved]
  - Fatigue [Recovered/Resolved]
  - Intentional product use issue [Recovered/Resolved]
  - Off label use [Recovered/Resolved]
  - Therapeutic product effect variable [Recovered/Resolved]

NARRATIVE: CASE EVENT DATE: 20230101
